FAERS Safety Report 9764685 (Version 2)
Quarter: 2013Q4

REPORT INFORMATION
  Report Type: Report from Study
  Country: US (occurrence: US)
  Receive Date: 20131217
  Receipt Date: 20131226
  Transmission Date: 20140711
  Serious: Yes (Other)
  Sender: FDA-Public Use
  Company Number: US-SA-2013SA128126

PATIENT
  Age: 38 Year
  Sex: Female

DRUGS (1)
  1. AUBAGIO [Suspect]
     Indication: MULTIPLE SCLEROSIS
     Route: 048
     Dates: start: 20131003

REACTIONS (4)
  - Angioedema [Not Recovered/Not Resolved]
  - Oedema mouth [Not Recovered/Not Resolved]
  - Oral pain [Not Recovered/Not Resolved]
  - Lip swelling [Recovered/Resolved]
